FAERS Safety Report 12269045 (Version 1)
Quarter: 2016Q2

REPORT INFORMATION
  Report Type: Spontaneous
  Country: DK (occurrence: DK)
  Receive Date: 20160414
  Receipt Date: 20160414
  Transmission Date: 20160815
  Serious: Yes (Other)
  Sender: FDA-Public Use
  Company Number: DK-BAYER-2016-068142

PATIENT
  Sex: Female

DRUGS (1)
  1. MIRENA [Suspect]
     Active Substance: LEVONORGESTREL
     Dosage: 20 MCG/24HR, CONT
     Route: 015
     Dates: start: 201405, end: 201506

REACTIONS (10)
  - Ovulation pain [None]
  - Device dislocation [None]
  - Abdominal operation [Not Recovered/Not Resolved]
  - Complication of device insertion [None]
  - Procedural haemorrhage [None]
  - Itching scar [Not Recovered/Not Resolved]
  - Hypertrophic scar [Not Recovered/Not Resolved]
  - Abdominal bruit [None]
  - Procedural pain [None]
  - Mental disorder [None]

NARRATIVE: CASE EVENT DATE: 201405
